FAERS Safety Report 13784902 (Version 2)
Quarter: 2017Q3

REPORT INFORMATION
  Report Type: Report from Study
  Country: CO (occurrence: CO)
  Receive Date: 20170725
  Receipt Date: 20170804
  Transmission Date: 20171127
  Serious: Yes (Hospitalization, Other)
  Sender: FDA-Public Use
  Company Number: PHHY2016CO048526

PATIENT
  Age: 46 Year
  Sex: Female
  Weight: 52 kg

DRUGS (7)
  1. AFINITOR [Suspect]
     Active Substance: EVEROLIMUS
     Indication: PANCREATIC NEUROENDOCRINE TUMOUR METASTATIC
     Dosage: 10 MG, QD (ONCE A MONTH)
     Route: 030
     Dates: start: 20160403, end: 20160502
  2. RANITIDINE. [Concomitant]
     Active Substance: RANITIDINE
     Indication: PRODUCT USED FOR UNKNOWN INDICATION
     Dosage: 300 MG, UNK
     Route: 065
  3. SANDOSTATIN LAR DEPOT [Suspect]
     Active Substance: OCTREOTIDE ACETATE
     Indication: PANCREATIC NEUROENDOCRINE TUMOUR METASTATIC
     Dosage: 30 MG, QMO (ONCE A MONTH)
     Route: 030
     Dates: start: 20160403, end: 20170506
  4. WINADEINE [Concomitant]
     Indication: PAIN
     Dosage: 500 MG, BID
     Route: 048
     Dates: start: 20160127
  5. ESOMEPRAZOLE [Concomitant]
     Active Substance: ESOMEPRAZOLE
     Indication: PRODUCT USED FOR UNKNOWN INDICATION
     Dosage: 45 MG, BID
     Route: 048
  6. PROPRANOLOL [Concomitant]
     Active Substance: PROPRANOLOL HYDROCHLORIDE
     Indication: PRODUCT USED FOR UNKNOWN INDICATION
     Dosage: 40 MG, UNK
     Route: 065
  7. ONDANSETRON [Concomitant]
     Active Substance: ONDANSETRON
     Indication: PRODUCT USED FOR UNKNOWN INDICATION
     Dosage: UNK
     Route: 065

REACTIONS (16)
  - Synovial cyst [Unknown]
  - Stomatitis [Unknown]
  - Viral infection [Unknown]
  - Vomiting [Unknown]
  - Inflammation [Unknown]
  - Varices oesophageal [Unknown]
  - Nausea [Unknown]
  - Portal vein dilatation [Unknown]
  - Mouth injury [Unknown]
  - Oesophageal ulcer [Unknown]
  - Hepatic failure [Unknown]
  - Mouth ulceration [Unknown]
  - Abdominal pain upper [Unknown]
  - Pain [Unknown]
  - Hypertension [Unknown]
  - Incorrect route of drug administration [Unknown]

NARRATIVE: CASE EVENT DATE: 20160405
